FAERS Safety Report 4962759-4 (Version None)
Quarter: 2006Q1

REPORT INFORMATION
  Report Type: 
  Country: None (occurrence: None)
  Receive Date: 20060201
  Receipt Date: 20051101
  Transmission Date: 20060701
  Serious: No
  Sender: FDA-Public Use
  Company Number: 2005PV004171

PATIENT
  Age: 51 Year
  Sex: Female
  Weight: 117.028 kg

DRUGS (6)
  1. BYETTA [Suspect]
     Indication: DIABETES MELLITUS NON-INSULIN-DEPENDENT
     Dosage: 10 MCG;BID;SC
     Route: 058
     Dates: start: 20051101
  2. METFORMIN [Concomitant]
  3. GLUCOVANCE [Concomitant]
  4. ACTOS [Concomitant]
  5. ENALAPRIL MALEATE [Concomitant]
  6. HYDROCHLOROTHIAZIDE [Concomitant]

REACTIONS (3)
  - BLOOD GLUCOSE INCREASED [None]
  - FEELING HOT [None]
  - HYPERHIDROSIS [None]
